APPROVED DRUG PRODUCT: TELMISARTAN AND AMLODIPINE
Active Ingredient: AMLODIPINE BESYLATE; TELMISARTAN
Strength: EQ 5MG BASE;40MG
Dosage Form/Route: TABLET;ORAL
Application: A202517 | Product #001
Applicant: TORRENT PHARMACEUTICALS LTD
Approved: Jan 8, 2014 | RLD: No | RS: No | Type: DISCN